FAERS Safety Report 8470245-2 (Version None)
Quarter: 2012Q2

REPORT INFORMATION
  Report Type: 
  Country: None (occurrence: None)
  Receive Date: 20120627
  Receipt Date: 20120619
  Transmission Date: 20120825
  Serious: Yes (Other)
  Sender: FDA-Public Use
  Company Number: US-BAYER-2011-102251

PATIENT
  Sex: Female

DRUGS (1)
  1. MIRENA [Suspect]
     Dosage: 20 MCG/24HR, CONT
     Route: 015
     Dates: start: 20110201, end: 20120528

REACTIONS (6)
  - ESCHERICHIA VAGINITIS [None]
  - GENITAL HAEMORRHAGE [None]
  - ABDOMINAL PAIN [None]
  - BREAST TENDERNESS [None]
  - PRODUCT CONTAMINATION MICROBIAL [None]
  - ABDOMINAL PAIN LOWER [None]
